FAERS Safety Report 22846702 (Version 2)
Quarter: 2025Q2

REPORT INFORMATION
  Report Type: Spontaneous
  Country: PT (occurrence: PT)
  Receive Date: 20230822
  Receipt Date: 20250503
  Transmission Date: 20250717
  Serious: Yes (Other)
  Sender: AUROBINDO
  Company Number: PT-KERNPHARMA-202301658

PATIENT
  Age: 22 Year
  Sex: Male

DRUGS (1)
  1. AZITHROMYCIN [Suspect]
     Active Substance: AZITHROMYCIN
     Indication: Tonsillitis
     Route: 065

REACTIONS (3)
  - Cutaneous vasculitis [Unknown]
  - Henoch-Schonlein purpura [Unknown]
  - Drug ineffective [Unknown]
